FAERS Safety Report 19169133 (Version 1)
Quarter: 2021Q2

REPORT INFORMATION
  Report Type: Spontaneous
  Country: EG (occurrence: EG)
  Receive Date: 20210422
  Receipt Date: 20210422
  Transmission Date: 20210717
  Serious: Yes (Other)
  Sender: FDA-Public Use
  Company Number: NVSC2021EG085791

PATIENT
  Age: 49 Year
  Sex: Male

DRUGS (1)
  1. EXFORGE [Suspect]
     Active Substance: AMLODIPINE BESYLATE\VALSARTAN
     Indication: HYPERTENSION
     Dosage: UNK (10)
     Route: 065

REACTIONS (3)
  - Oedema peripheral [Unknown]
  - Erectile dysfunction [Unknown]
  - Dyspepsia [Unknown]
